FAERS Safety Report 9102856 (Version 3)
Quarter: 2013Q1

REPORT INFORMATION
  Report Type: Spontaneous
  Country: PE (occurrence: PE)
  Receive Date: 20130219
  Receipt Date: 20130301
  Transmission Date: 20140127
  Serious: Yes (Hospitalization, Other)
  Sender: FDA-Public Use
  Company Number: PHHY2013PE016075

PATIENT
  Age: 18 Year
  Sex: Male

DRUGS (1)
  1. GILENYA [Suspect]
     Indication: RELAPSING-REMITTING MULTIPLE SCLEROSIS
     Dosage: 0.5 MG, DAILY
     Route: 048
     Dates: start: 20121216

REACTIONS (3)
  - Multiple sclerosis relapse [Recovered/Resolved]
  - Central nervous system lesion [Unknown]
  - Muscular weakness [Recovered/Resolved with Sequelae]
